FAERS Safety Report 16084863 (Version 1)
Quarter: 2019Q1

REPORT INFORMATION
  Report Type: Spontaneous
  Country: CA (occurrence: CA)
  Receive Date: 20190318
  Receipt Date: 20190318
  Transmission Date: 20190418
  Serious: Yes (Hospitalization, Other)
  Sender: FDA-Public Use
  Company Number: CA-PFIZER INC-2019112480

PATIENT
  Age: 71 Year
  Sex: Male

DRUGS (25)
  1. ADVAIR HFA [Suspect]
     Active Substance: FLUTICASONE PROPIONATE\SALMETEROL XINAFOATE
     Dosage: 2 DF, UNK
     Route: 055
  2. DOCUSATE [Concomitant]
     Active Substance: DOCUSATE
     Dosage: UNK
  3. RATIO-IPRA SAL UDV [Concomitant]
     Dosage: UNK
  4. ASAPHEN [Concomitant]
     Active Substance: ASPIRIN
     Dosage: UNK
  5. HYDROCHLOROTHIAZIDE. [Concomitant]
     Active Substance: HYDROCHLOROTHIAZIDE
     Dosage: UNK
  6. ADVAIR HFA [Suspect]
     Active Substance: FLUTICASONE PROPIONATE\SALMETEROL XINAFOATE
     Dosage: 1 DF, 1X/DAY
     Route: 055
  7. AZITHROMYCIN ANHYDROUS. [Concomitant]
     Active Substance: AZITHROMYCIN ANHYDROUS
     Dosage: UNK
  8. MULTIVITAMINES AND MINERALS [Concomitant]
     Active Substance: MINERALS\VITAMINS
     Dosage: UNK
  9. TEVA COMBO STERINEBS [Concomitant]
     Dosage: UNK
  10. ALENDRONATE [Concomitant]
     Active Substance: ALENDRONATE SODIUM
     Dosage: UNK
  11. CARBOCAL [Concomitant]
     Active Substance: CALCIUM CARBONATE
     Dosage: UNK
  12. ONBREZ BREEZHALER [Concomitant]
     Active Substance: INDACATEROL
     Dosage: UNK
  13. VESICARE [Concomitant]
     Active Substance: SOLIFENACIN SUCCINATE
     Dosage: UNK
  14. LACTULOSE. [Concomitant]
     Active Substance: LACTULOSE
     Dosage: UNK
  15. NOVO-GESIC [Concomitant]
     Dosage: UNK
  16. AMLODIPINE [Concomitant]
     Active Substance: AMLODIPINE BESYLATE
     Dosage: UNK
  17. AVODART [Concomitant]
     Active Substance: DUTASTERIDE
     Dosage: UNK
  18. RAMIPRIL. [Concomitant]
     Active Substance: RAMIPRIL
     Dosage: UNK
  19. RAPAFLO [Concomitant]
     Active Substance: SILODOSIN
     Dosage: UNK
  20. CEFOXITIN SODIUM [Suspect]
     Active Substance: CEFOXITIN SODIUM
     Dosage: UNK
     Route: 065
  21. ALFUZOSIN [Concomitant]
     Active Substance: ALFUZOSIN
     Dosage: UNK
  22. CIPROFLOXACIN. [Concomitant]
     Active Substance: CIPROFLOXACIN
     Dosage: UNK
  23. PREDNISONE. [Concomitant]
     Active Substance: PREDNISONE
     Dosage: UNK
  24. SALBUTAMOL [Concomitant]
     Active Substance: ALBUTEROL
     Dosage: UNK
  25. SPIRIVA [Concomitant]
     Active Substance: TIOTROPIUM BROMIDE MONOHYDRATE
     Dosage: UNK

REACTIONS (5)
  - Cheilitis [Unknown]
  - Dry mouth [Unknown]
  - Oral candidiasis [Unknown]
  - Pneumonia [Unknown]
  - Lip oedema [Unknown]
